FAERS Safety Report 9630322 (Version 1)
Quarter: 2013Q4

REPORT INFORMATION
  Report Type: Spontaneous
  Country: DE (occurrence: DE)
  Receive Date: 20131018
  Receipt Date: 20131018
  Transmission Date: 20140711
  Serious: Yes (Congenital Anomaly)
  Sender: FDA-Public Use
  Company Number: DE-009507513-1310DEU004539

PATIENT
  Sex: Male
  Weight: 1.38 kg

DRUGS (5)
  1. MIRTAZAPINE [Suspect]
     Dosage: 15 MILLIGRAM(S), 1 IN 1 DAY
     Route: 064
  2. MIRTAZAPINE [Suspect]
     Dosage: 30 MILLIGRAM(S), 1IN 1 DAY
     Route: 064
  3. CETIRIZIN [Concomitant]
     Dosage: 10 MILLIGRAM(S), 1 IN 1 DAY FROM 1 TRIMESTER TO 5 GESTATIONAL WEEK
     Route: 064
  4. NASONEX [Concomitant]
     Dosage: UNK, FROM 1 TRIMESTER TO 38 GESTATIONAL WEEK
     Route: 064
  5. FOLIC ACID [Concomitant]
     Dosage: 0.8 MILLIGRAM(S), 1 IN 1DAY ,FROM 1 TRIMESTER TO 38 GESTATIONAL WEEK
     Route: 064

REACTIONS (5)
  - Congenital aortic valve incompetence [Not Recovered/Not Resolved]
  - Congenital aortic valve stenosis [Not Recovered/Not Resolved]
  - Bicuspid aortic valve [Not Recovered/Not Resolved]
  - Cytogenetic abnormality [Not Recovered/Not Resolved]
  - Atrial septal defect [Not Recovered/Not Resolved]
